FAERS Safety Report 23987461 (Version 1)
Quarter: 2024Q2

REPORT INFORMATION
  Report Type: Spontaneous
  Country: US (occurrence: US)
  Receive Date: 20240618
  Receipt Date: 20240618
  Transmission Date: 20240717
  Serious: No
  Sender: FDA-Public Use
  Company Number: US-Calliditas-2024CAL01068

PATIENT
  Age: 65 Year
  Sex: Male
  Weight: 70 kg

DRUGS (1)
  1. TARPEYO [Suspect]
     Active Substance: BUDESONIDE
     Indication: Haematuria
     Route: 048
     Dates: start: 20240508

REACTIONS (3)
  - Oedema [Recovered/Resolved]
  - Blood pressure increased [Unknown]
  - Off label use [Unknown]
